FAERS Safety Report 10521020 (Version 2)
Quarter: 2014Q4

REPORT INFORMATION
  Report Type: Report from Study
  Country: FR (occurrence: FR)
  Receive Date: 20141016
  Receipt Date: 20141204
  Transmission Date: 20150528
  Serious: Yes (Other)
  Sender: FDA-Public Use
  Company Number: FR-AMGEN-FRACT2014078781

PATIENT
  Age: 50 Year
  Sex: Male
  Weight: 43.8 kg

DRUGS (6)
  1. METHOTREXATE [Concomitant]
     Active Substance: METHOTREXATE
     Indication: TRANSITIONAL CELL CARCINOMA
     Dosage: 44 MG, UNK
     Route: 042
     Dates: start: 20140604
  2. NEUPOGEN [Concomitant]
     Active Substance: FILGRASTIM
     Indication: PROPHYLAXIS
     Dosage: UNK
     Route: 058
     Dates: start: 20140822, end: 20140830
  3. VINBLASTINE [Concomitant]
     Active Substance: VINBLASTINE
     Indication: TRANSITIONAL CELL CARCINOMA
     Dosage: 4.5 MG, UNK
     Route: 042
     Dates: start: 20140605
  4. PANITUMUMAB [Suspect]
     Active Substance: PANITUMUMAB
     Indication: TRANSITIONAL CELL CARCINOMA
     Dosage: 270 MG, UNK
     Route: 042
     Dates: start: 20140605
  5. DOXORUBICINE                       /00330901/ [Concomitant]
     Active Substance: DOXORUBICIN
     Indication: TRANSITIONAL CELL CARCINOMA
     Dosage: 44 MG, UNK
     Route: 042
     Dates: start: 20140605
  6. CISPLATINE [Concomitant]
     Active Substance: CISPLATIN
     Indication: TRANSITIONAL CELL CARCINOMA
     Dosage: 104 MG, UNK
     Route: 042
     Dates: start: 20140605

REACTIONS (1)
  - Neutropenia [Recovered/Resolved]

NARRATIVE: CASE EVENT DATE: 20140903
